FAERS Safety Report 5757256-2 (Version None)
Quarter: 2008Q2

REPORT INFORMATION
  Report Type: 
  Country: None (occurrence: None)
  Receive Date: 20080603
  Receipt Date: 20080522
  Transmission Date: 20081010
  Serious: Yes (Death, Hospitalization, Other)
  Sender: FDA-Public Use
  Company Number: CA-ELI_LILLY_AND_COMPANY-CA200804007439

PATIENT
  Age: 81 Year
  Sex: Female

DRUGS (6)
  1. FORTEO [Suspect]
     Indication: OSTEOPOROSIS
     Dosage: 20 UG, DAILY (1/D)
     Route: 058
     Dates: start: 20070412, end: 20080416
  2. TYLENOL W/ CODEINE NO. 3 [Concomitant]
  3. SYNTHROID [Concomitant]
  4. PLAVIX [Concomitant]
  5. CRESTOR [Concomitant]
  6. SPIRONOLACTONE W/ HYDROCHLOROTHIAZIDE [Concomitant]

REACTIONS (5)
  - BLOOD TEST ABNORMAL [None]
  - DEATH [None]
  - HYPERCALCAEMIA [None]
  - LUNG NEOPLASM MALIGNANT [None]
  - METABOLIC DISORDER [None]
